FAERS Safety Report 20496394 (Version 4)
Quarter: 2022Q1

REPORT INFORMATION
  Report Type: Report from Study
  Country: EG (occurrence: EG)
  Receive Date: 20220221
  Receipt Date: 20220322
  Transmission Date: 20220423
  Serious: Yes (Other)
  Sender: FDA-Public Use
  Company Number: EG-NOVARTISPH-NVSC2022EG037729

PATIENT
  Age: 25 Year
  Sex: Female

DRUGS (5)
  1. GILENYA [Suspect]
     Active Substance: FINGOLIMOD HYDROCHLORIDE
     Indication: Multiple sclerosis
     Dosage: 0.5 MG, QD
     Route: 048
     Dates: start: 20211012
  2. BENFOTIAMINE\CYANOCOBALAMIN\PYRIDOXINE HYDROCHLORIDE [Concomitant]
     Active Substance: BENFOTIAMINE\CYANOCOBALAMIN\PYRIDOXINE HYDROCHLORIDE
     Indication: Hypovitaminosis
     Dosage: 1 DOSAGE FORM, QD
     Route: 048
     Dates: start: 2020
  3. OMEGA [Concomitant]
     Indication: Hypovitaminosis
     Dosage: 1 DOSAGE FORM, QD
     Route: 048
     Dates: start: 2020
  4. BIOTIN [Concomitant]
     Active Substance: BIOTIN
     Indication: Hypovitaminosis
     Dosage: 1 DOSAGE FORM, QD
     Route: 048
     Dates: start: 2020
  5. PAROXETINE HYDROCHLORIDE [Concomitant]
     Active Substance: PAROXETINE HYDROCHLORIDE
     Indication: Mental disorder
     Dosage: 1 DOSAGE FORM, QD
     Route: 048
     Dates: start: 202108

REACTIONS (6)
  - Balance disorder [Not Recovered/Not Resolved]
  - Immunodeficiency [Not Recovered/Not Resolved]
  - Fatigue [Unknown]
  - Chest pain [Not Recovered/Not Resolved]
  - Hypoaesthesia [Not Recovered/Not Resolved]
  - Insomnia [Not Recovered/Not Resolved]

NARRATIVE: CASE EVENT DATE: 20211012
